FAERS Safety Report 14587508 (Version 1)
Quarter: 2018Q1

REPORT INFORMATION
  Report Type: Spontaneous
  Country: DE (occurrence: DE)
  Receive Date: 20180301
  Receipt Date: 20180301
  Transmission Date: 20180509
  Serious: Yes (Hospitalization)
  Sender: FDA-Public Use
  Company Number: DE-ASTRAZENECA-1999AH00378

PATIENT
  Age: 42 Year
  Sex: Male

DRUGS (3)
  1. ANTRA [Suspect]
     Active Substance: OMEPRAZOLE
     Indication: GASTRINOMA
     Route: 048
     Dates: start: 199805, end: 199806
  2. ANTRA [Suspect]
     Active Substance: OMEPRAZOLE
     Indication: GASTRINOMA
     Route: 048
     Dates: start: 199808, end: 199809
  3. ANTRA [Suspect]
     Active Substance: OMEPRAZOLE
     Indication: GASTRINOMA
     Route: 048
     Dates: start: 199806, end: 199808

REACTIONS (1)
  - Hypersensitivity vasculitis [Recovered/Resolved]

NARRATIVE: CASE EVENT DATE: 199809
